FAERS Safety Report 5027729-9 (Version None)
Quarter: 2006Q2

REPORT INFORMATION
  Report Type: 
  Country: None (occurrence: None)
  Receive Date: 20060428
  Receipt Date: 20060313
  Transmission Date: 20061013
  Serious: No
  Sender: FDA-Public Use
  Company Number: COT_0451_2006

PATIENT
  Age: 64 Year
  Sex: Female
  Weight: 77.1115 kg

DRUGS (8)
  1. VENTAVIS [Suspect]
     Indication: PULMONARY HYPERTENSION
     Dosage: 5 MCG 6XD IH
     Dates: start: 20060309
  2. GLUCOPHAGE [Concomitant]
  3. SILDENAFIL [Concomitant]
  4. COUMADIN [Concomitant]
  5. NORVASC [Concomitant]
  6. MONOPRIL [Concomitant]
  7. LASIX [Concomitant]
  8. TRACLEER [Concomitant]

REACTIONS (1)
  - TREMOR [None]
